FAERS Safety Report 15957276 (Version 2)
Quarter: 2019Q2

REPORT INFORMATION
  Report Type: Spontaneous
  Country: DE (occurrence: DE)
  Receive Date: 20190213
  Receipt Date: 20190410
  Transmission Date: 20190711
  Serious: Yes (Other)
  Sender: FDA-Public Use
  Company Number: PHHY2019DE012766

PATIENT
  Sex: Male
  Weight: 110 kg

DRUGS (2)
  1. REVOLADE [Suspect]
     Active Substance: ELTROMBOPAG
     Indication: IMMUNE THROMBOCYTOPENIC PURPURA
     Dosage: 50 MG, Q4W
     Route: 048
     Dates: start: 20180929
  2. REVOLADE [Suspect]
     Active Substance: ELTROMBOPAG
     Dosage: 75 MG, Q2W
     Route: 065
     Dates: end: 20181105

REACTIONS (8)
  - Platelet count decreased [Unknown]
  - Obesity [Unknown]
  - Pulmonary embolism [Unknown]
  - Hepatic steatosis [Unknown]
  - Blood pressure decreased [Unknown]
  - Tricuspid valve disease [Unknown]
  - Cardiac ventricular disorder [Unknown]
  - Dyspnoea [Recovering/Resolving]

NARRATIVE: CASE EVENT DATE: 20181025
